FAERS Safety Report 9901097 (Version 2)
Quarter: 2014Q2

REPORT INFORMATION
  Report Type: Spontaneous
  Country: US (occurrence: US)
  Receive Date: 20140217
  Receipt Date: 20140423
  Transmission Date: 20141212
  Serious: No
  Sender: FDA-Public Use
  Company Number: US-PFIZER INC-2014041375

PATIENT
  Age: 60 Year
  Sex: Female
  Weight: 99.77 kg

DRUGS (2)
  1. ZOLOFT [Suspect]
     Indication: INSOMNIA
     Dosage: 50 MG, DAILY
     Dates: start: 201308, end: 20140120
  2. TRAMADOL HYDROCHLORIDE [Suspect]
     Indication: PAIN IN EXTREMITY
     Dosage: 50 MG, EVERY 6 HRS
     Dates: start: 201312, end: 20140203

REACTIONS (5)
  - Drug withdrawal syndrome [Unknown]
  - Crying [Unknown]
  - Feeling abnormal [Unknown]
  - Mental disorder [Unknown]
  - Anxiety [Unknown]
